FAERS Safety Report 5025779-X (Version None)
Quarter: 2006Q2

REPORT INFORMATION
  Report Type: 
  Country: None (occurrence: None)
  Receive Date: 20060609
  Receipt Date: 20060609
  Transmission Date: 20061013
  Serious: Yes (Hospitalization)
  Sender: FDA-Public Use
  Company Number: None

PATIENT
  Sex: Female
  Weight: 60 kg

DRUGS (2)
  1. RAPAMYCIN [Suspect]
     Indication: METASTASIS
     Dosage: 20 MG WEEKLY PO
     Route: 048
     Dates: start: 20060321, end: 20060530
  2. RAPAMYCIN [Suspect]
     Indication: NEUROENDOCRINE TUMOUR
     Dosage: 20 MG WEEKLY PO
     Route: 048
     Dates: start: 20060321, end: 20060530

REACTIONS (2)
  - HYPOTENSION [None]
  - HYPOXIA [None]
